FAERS Safety Report 8967932 (Version 1)
Quarter: 2012Q4

REPORT INFORMATION
  Report Type: 
  Country: US (occurrence: US)
  Receive Date: 20121218
  Receipt Date: 20121218
  Transmission Date: 20130627
  Serious: No
  Sender: FDA-Public Use
  Company Number: US-GLAXOSMITHKLINE-A0989534A

PATIENT
  Age: 80 Year
  Sex: Male

DRUGS (10)
  1. COREG CR [Suspect]
     Indication: HYPERTENSION
     Dosage: 40MG Per day
     Route: 048
  2. NORVASC [Concomitant]
  3. MAXIDE [Concomitant]
  4. NEXIUM [Concomitant]
  5. ZETIA [Concomitant]
  6. LEXAPRO [Concomitant]
  7. PRAVASTATIN [Concomitant]
  8. WELCHOL [Concomitant]
  9. VITAMINS [Concomitant]
  10. CLARITIN [Concomitant]

REACTIONS (3)
  - Palmar erythema [Unknown]
  - Pruritus [Unknown]
  - Hypersensitivity [Unknown]
